FAERS Safety Report 7221979-9 (Version None)
Quarter: 2011Q1

REPORT INFORMATION
  Report Type: 
  Country: None (occurrence: None)
  Receive Date: 20110112
  Receipt Date: 20110111
  Transmission Date: 20110831
  Serious: Yes (Hospitalization)
  Sender: FDA-Public Use
  Company Number: B0693256A

PATIENT
  Sex: Female

DRUGS (1)
  1. AMOXICILLIN AND CLAVULANATE POTASSIUM [Suspect]
     Indication: ACUTE SINUSITIS
     Dosage: 1TAB PER DAY
     Route: 048
     Dates: start: 20110106

REACTIONS (3)
  - PHARYNGEAL OEDEMA [None]
  - DYSPNOEA [None]
  - DYSPHAGIA [None]
